FAERS Safety Report 4531420-2 (Version None)
Quarter: 2004Q4

REPORT INFORMATION
  Report Type: 
  Country: None (occurrence: None)
  Receive Date: 20041217
  Receipt Date: 20041206
  Transmission Date: 20050328
  Serious: Yes (Other)
  Sender: FDA-Public Use
  Company Number: 2004103896

PATIENT
  Age: 83 Year
  Sex: Female

DRUGS (1)
  1. PACQUIN MEDICATED HAND AND BODY CREAM (DIMETICONE) [Suspect]
     Indication: DRY SKIN
     Dosage: QD, TOPICAL
     Route: 061

REACTIONS (1)
  - LYMPHOMA [None]
